FAERS Safety Report 24448317 (Version 1)
Quarter: 2024Q4

REPORT INFORMATION
  Report Type: Report from Study
  Country: MX (occurrence: MX)
  Receive Date: 20241017
  Receipt Date: 20241017
  Transmission Date: 20250114
  Serious: Yes (Hospitalization)
  Sender: ABBVIE
  Company Number: MX-ABBVIE-5961825

PATIENT
  Sex: Female
  Weight: 71 kg

DRUGS (1)
  1. HUMIRA [Suspect]
     Active Substance: ADALIMUMAB
     Indication: Spondylitis
     Dosage: FORM STRENGTH: 40 MILLIGRAM
     Route: 058
     Dates: start: 20240824

REACTIONS (5)
  - Chronic gastritis [Unknown]
  - Drug ineffective [Unknown]
  - Sciatica [Recovering/Resolving]
  - Autoimmune disorder [Unknown]
  - Illness [Unknown]

NARRATIVE: CASE EVENT DATE: 20240101
